FAERS Safety Report 7741179-3 (Version None)
Quarter: 2011Q3

REPORT INFORMATION
  Report Type: 
  Country: None (occurrence: None)
  Receive Date: 20110909
  Receipt Date: 20110830
  Transmission Date: 20111222
  Serious: Yes (Death, Hospitalization)
  Sender: FDA-Public Use
  Company Number: MX-ELI_LILLY_AND_COMPANY-MX201108003706

PATIENT
  Age: 35 Year
  Sex: Female

DRUGS (1)
  1. ZYPREXA [Suspect]
     Indication: AGITATION
     Dosage: 10 MG, UNKNOWN
     Route: 030

REACTIONS (4)
  - CONVULSION [None]
  - AGITATION [None]
  - DEATH [None]
  - DRUG INEFFECTIVE [None]
